FAERS Safety Report 17865840 (Version 2)
Quarter: 2020Q3

REPORT INFORMATION
  Report Type: Spontaneous
  Country: US (occurrence: US)
  Receive Date: 20200605
  Receipt Date: 20200713
  Transmission Date: 20201103
  Serious: No
  Sender: FDA-Public Use
  Company Number: US-PFIZER INC-2020220089

PATIENT
  Age: 56 Year
  Sex: Female
  Weight: 77.1 kg

DRUGS (1)
  1. XELJANZ XR [Suspect]
     Active Substance: TOFACITINIB CITRATE
     Indication: RHEUMATOID ARTHRITIS
     Dosage: 11 MG, DAILY
     Route: 048
     Dates: start: 202005, end: 202006

REACTIONS (5)
  - Diarrhoea [Unknown]
  - Oropharyngeal pain [Unknown]
  - Headache [Unknown]
  - Hypersensitivity [Unknown]
  - Blood cholesterol increased [Unknown]
